FAERS Safety Report 12998232 (Version 1)
Quarter: 2016Q4

REPORT INFORMATION
  Report Type: Spontaneous
  Country: US (occurrence: US)
  Receive Date: 20161202
  Receipt Date: 20161202
  Transmission Date: 20170207
  Serious: Yes (Disabling)
  Sender: FDA-Public Use
  Company Number: None

PATIENT
  Age: 31 Year
  Sex: Female
  Weight: 49.5 kg

DRUGS (5)
  1. VITAMIN D [Concomitant]
     Active Substance: CHOLECALCIFEROL
  2. BUPROPION HYDROCHLORIDE XL [Suspect]
     Active Substance: BUPROPION HYDROCHLORIDE
     Indication: DEPRESSION
     Dosage: ?          QUANTITY:1 TABLET(S);?
     Route: 048
     Dates: start: 20161124, end: 20161202
  3. BUPROPION XL [Concomitant]
     Active Substance: BUPROPION
  4. OMEGA-3 MULTIVITAMIN [Concomitant]
  5. MANDIBULAR REPOSITIONING DEVICE [Concomitant]

REACTIONS (7)
  - Drug ineffective [None]
  - No reaction on previous exposure to drug [None]
  - Product quality issue [None]
  - Depression [None]
  - Paraesthesia [None]
  - Mood swings [None]
  - Withdrawal syndrome [None]

NARRATIVE: CASE EVENT DATE: 20161126
